FAERS Safety Report 17041861 (Version 1)
Quarter: 2019Q4

REPORT INFORMATION
  Report Type: Spontaneous
  Country: GB (occurrence: GB)
  Receive Date: 20191118
  Receipt Date: 20191118
  Transmission Date: 20200122
  Serious: Yes (Other)
  Sender: FDA-Public Use
  Company Number: GB-TEVA-2019-GB-1137940

PATIENT
  Age: 71 Year
  Sex: Female
  Weight: 67.12 kg

DRUGS (4)
  1. FLUCLOXACILLIN [Suspect]
     Active Substance: FLUCLOXACILLIN
     Dosage: 8 DOSAGE FORMS , DAILY
     Route: 048
     Dates: start: 20180511, end: 20180519
  2. FLUCLOXACILLIN [Suspect]
     Active Substance: FLUCLOXACILLIN
     Indication: BACTERIAL INFECTION
     Dosage: 4 DOSAGE FORMS , DAILY
     Route: 048
     Dates: start: 20180505, end: 20180510
  3. PHENOXYMETHYLPENICILLIN [Suspect]
     Active Substance: PENICILLIN V
     Indication: BACTERIAL INFECTION
     Dosage: 2000 MG, DAILY
     Route: 048
     Dates: start: 20180511, end: 20180518
  4. LUMIGAN [Concomitant]
     Active Substance: BIMATOPROST
     Route: 050

REACTIONS (2)
  - Pain in extremity [Recovering/Resolving]
  - Tinnitus [Recovering/Resolving]

NARRATIVE: CASE EVENT DATE: 20180507
